FAERS Safety Report 18512342 (Version 2)
Quarter: 2020Q4

REPORT INFORMATION
  Report Type: Report from Study
  Country: US (occurrence: US)
  Receive Date: 20201117
  Receipt Date: 20201207
  Transmission Date: 20210114
  Serious: Yes (Other)
  Sender: FDA-Public Use
  Company Number: US-BAYER-2020-242985

PATIENT
  Age: 78 Year
  Sex: Female

DRUGS (12)
  1. DUODERM CGF [CARMELLOSE SODIUM] [Concomitant]
  2. STIVARGA [Suspect]
     Active Substance: REGORAFENIB
     Indication: COLORECTAL CANCER
     Dosage: DAILY DOSE 120 MG
     Route: 048
     Dates: start: 20201026, end: 20201101
  3. METOPROLOL TARTRATE. [Concomitant]
     Active Substance: METOPROLOL TARTRATE
     Dosage: 25 MG TABLET
  4. STIVARGA [Suspect]
     Active Substance: REGORAFENIB
     Indication: COLORECTAL CANCER
     Dosage: DAILY DOSE 160 MG
     Route: 048
     Dates: start: 20201102, end: 20201106
  5. AMLODIPINE [Concomitant]
     Active Substance: AMLODIPINE BESYLATE
     Dosage: 5 MG TABLET
  6. NYSTATIN. [Concomitant]
     Active Substance: NYSTATIN
     Dosage: 100,000 UNIT/ML ORAL SUSPENSION
  7. SEROQUEL [Concomitant]
     Active Substance: QUETIAPINE FUMARATE
     Dosage: 25 MG TABLET
  8. ZITHROMAX [Concomitant]
     Active Substance: AZITHROMYCIN DIHYDRATE
     Dosage: 250 MG TABLET
  9. AMOXICILLIN. [Concomitant]
     Active Substance: AMOXICILLIN
     Dosage: 400 MG/ 5 ML ORAL SUSPENSION
  10. CLEOCIN T [Concomitant]
     Active Substance: CLINDAMYCIN PHOSPHATE
     Dosage: 1 % TOPICAL GEL
  11. STIVARGA [Suspect]
     Active Substance: REGORAFENIB
     Indication: COLORECTAL CANCER
     Dosage: DAILY DOSE 80 MG
     Route: 048
     Dates: start: 20201019, end: 20201025
  12. LIDOCAINE. [Concomitant]
     Active Substance: LIDOCAINE
     Dosage: 2 % SOLUTION

REACTIONS (10)
  - Dysphagia [None]
  - Pyrexia [Not Recovered/Not Resolved]
  - Balance disorder [None]
  - Decubitus ulcer [None]
  - Neuropathy peripheral [Not Recovered/Not Resolved]
  - Decreased appetite [None]
  - Muscular weakness [None]
  - Fatigue [None]
  - Off label use [None]
  - Pyrexia [None]

NARRATIVE: CASE EVENT DATE: 20201019
